FAERS Safety Report 20707192 (Version 1)
Quarter: 2022Q2

REPORT INFORMATION
  Report Type: Spontaneous
  Country: SE (occurrence: SE)
  Receive Date: 20220413
  Receipt Date: 20220413
  Transmission Date: 20220721
  Serious: Yes (Life-Threatening, Hospitalization, Disabling)
  Sender: FDA-Public Use
  Company Number: SE-ABBVIE-15K-150-1362559-00

PATIENT
  Age: 35 Year
  Sex: Male

DRUGS (8)
  1. HUMIRA [Suspect]
     Active Substance: ADALIMUMAB
     Indication: Crohn^s disease
     Dosage: 1 SYRINGE EVERY OTHER WEEK SOMETIMES EVERY WEEK
     Route: 058
     Dates: start: 20080616
  2. HUMIRA [Suspect]
     Active Substance: ADALIMUMAB
     Dosage: 1 SYRINGE EVERY OTHER WEEK SOMETIMES EVERY WEEK
     Route: 058
     Dates: end: 20140930
  3. AZATHIOPRINE SODIUM [Suspect]
     Active Substance: AZATHIOPRINE SODIUM
     Indication: Product used for unknown indication
     Route: 065
     Dates: start: 2008, end: 2014
  4. HERBALS\KARAYA GUM [Concomitant]
     Active Substance: HERBALS\KARAYA GUM
     Indication: Product used for unknown indication
     Dates: start: 2004, end: 2014
  5. FLAGYL [Concomitant]
     Active Substance: METRONIDAZOLE\METRONIDAZOLE HYDROCHLORIDE
     Indication: Product used for unknown indication
     Dates: start: 2003, end: 2009
  6. ENTOCORT [Concomitant]
     Active Substance: BUDESONIDE
     Indication: Product used for unknown indication
     Dates: start: 2003, end: 2007
  7. BEHEPAN [Concomitant]
     Indication: Product used for unknown indication
  8. PREDNISOLONE [Concomitant]
     Active Substance: PREDNISOLONE
     Indication: Product used for unknown indication
     Dosage: STANDARD TREATMENT DURING 8 WEEKS
     Dates: start: 2009, end: 2009

REACTIONS (6)
  - Hepatic neoplasm [Recovered/Resolved with Sequelae]
  - Splenectomy [Recovered/Resolved with Sequelae]
  - Hepatocellular carcinoma [Not Recovered/Not Resolved]
  - C-reactive protein increased [Unknown]
  - Muscle tightness [Unknown]
  - Crohn^s disease [Recovered/Resolved]

NARRATIVE: CASE EVENT DATE: 20140606
